FAERS Safety Report 5101266-5 (Version None)
Quarter: 2006Q3

REPORT INFORMATION
  Report Type: 
  Country: None (occurrence: None)
  Receive Date: 20060911
  Receipt Date: 20060904
  Transmission Date: 20061208
  Serious: Yes (Other)
  Sender: FDA-Public Use
  Company Number: IL-AVENTIS-200614660EU

PATIENT
  Age: 52 Year
  Sex: Female

DRUGS (4)
  1. FUSID [Suspect]
     Indication: OEDEMA PERIPHERAL
     Route: 048
  2. VANCOMYCIN [Concomitant]
     Indication: OSTEOMYELITIS
     Route: 042
  3. METFORMIN HCL [Concomitant]
     Indication: DIABETES MELLITUS NON-INSULIN-DEPENDENT
  4. SIMOVIL [Concomitant]
     Indication: DYSLIPIDAEMIA

REACTIONS (1)
  - ACUTE GENERALISED EXANTHEMATOUS PUSTULOSIS [None]
